FAERS Safety Report 4441928-6 (Version None)
Quarter: 2004Q3

REPORT INFORMATION
  Report Type: 
  Country: None (occurrence: None)
  Receive Date: 20040901
  Receipt Date: 20040819
  Transmission Date: 20050211
  Serious: Yes (Other)
  Sender: FDA-Public Use
  Company Number: 2004229307DE

PATIENT
  Age: 24 Year
  Sex: Male
  Weight: 95 kg

DRUGS (3)
  1. BEXTRA [Suspect]
     Indication: ARTHRALGIA
     Dosage: 40 MG, QD, ORAL
     Route: 048
  2. METHOTREXATE [Suspect]
     Indication: ARTHRALGIA
     Dosage: 7.5 MG, SINGLE, INTRAMUSCULAR
     Route: 030
     Dates: start: 20040701, end: 20040701
  3. TRAMADOL HCL [Concomitant]

REACTIONS (4)
  - DRUG INTERACTION [None]
  - LEUKOPENIA [None]
  - PYREXIA [None]
  - THROMBOCYTOPENIA [None]
